FAERS Safety Report 22126591 (Version 1)
Quarter: 2023Q1

REPORT INFORMATION
  Report Type: Spontaneous
  Country: CN (occurrence: CN)
  Receive Date: 20230322
  Receipt Date: 20230322
  Transmission Date: 20230418
  Serious: Yes (Other)
  Sender: FDA-Public Use
  Company Number: CN-SA-SAC20230321001591

PATIENT
  Age: 70 Year
  Sex: Female
  Weight: 54 kg

DRUGS (10)
  1. OXALIPLATIN [Suspect]
     Active Substance: OXALIPLATIN
     Indication: Rectal cancer
     Dosage: 160 MG, QD
     Route: 041
     Dates: start: 20230227, end: 20230227
  2. CAPECITABINE [Suspect]
     Active Substance: CAPECITABINE
     Indication: Rectal cancer
     Dosage: 1.5 G, QD
     Route: 048
     Dates: start: 20230227, end: 20230312
  3. CAPECITABINE [Suspect]
     Active Substance: CAPECITABINE
     Dosage: 1 G, QD
     Route: 048
     Dates: start: 20230227, end: 20230312
  4. METHYLPREDNISOLONE SODIUM SUCCINATE [Concomitant]
     Active Substance: METHYLPREDNISOLONE SODIUM SUCCINATE
     Dosage: 40 MG
     Dates: start: 20230226, end: 20230227
  5. SODIUM CHLORIDE [Concomitant]
     Active Substance: SODIUM CHLORIDE
     Dosage: 250 ML, QD
     Route: 041
     Dates: start: 20230226, end: 20230227
  6. SODIUM CHLORIDE [Concomitant]
     Active Substance: SODIUM CHLORIDE
     Dosage: 50 ML, QD
     Route: 041
     Dates: start: 20230226, end: 20230227
  7. DOLASETRON MESYLATE [Concomitant]
     Active Substance: DOLASETRON MESYLATE
     Dosage: 12.5 MG
     Dates: start: 20230226, end: 20230227
  8. METOCLOPRAMIDE DIHYDROCHLORIDE [Concomitant]
     Dosage: 10 MG, BID
     Route: 030
     Dates: start: 20230226, end: 20230227
  9. CIMETIDINE [Concomitant]
     Active Substance: CIMETIDINE
     Indication: Prophylaxis
     Dosage: 0.4 G
     Dates: start: 20230226, end: 20230301
  10. DEXTROSE [Concomitant]
     Active Substance: DEXTROSE
     Indication: Prophylaxis
     Dosage: 250 ML, QD
     Route: 041
     Dates: start: 20230226, end: 20230301

REACTIONS (5)
  - Drug-induced liver injury [Recovering/Resolving]
  - Myelosuppression [Recovering/Resolving]
  - Gastrointestinal toxicity [Recovering/Resolving]
  - Asthenia [Recovering/Resolving]
  - Decreased appetite [Recovering/Resolving]

NARRATIVE: CASE EVENT DATE: 20230228
